FAERS Safety Report 5467645-1 (Version None)
Quarter: 2007Q3

REPORT INFORMATION
  Report Type: 
  Country: None (occurrence: None)
  Receive Date: 20070921
  Receipt Date: 20070919
  Transmission Date: 20080115
  Serious: Yes (Hospitalization, Other)
  Sender: FDA-Public Use
  Company Number: 41013

PATIENT
  Age: 42 Year
  Sex: Female

DRUGS (1)
  1. ADRIAMYCIN (DOXORUBICIN) IN. USP 10MG/5ML - BEDFORD LABS, INC. [Suspect]
     Indication: BREAST CANCER
     Dates: start: 20070426

REACTIONS (4)
  - HEADACHE [None]
  - HYPERTENSION [None]
  - NUCLEAR MAGNETIC RESONANCE IMAGING BRAIN ABNORMAL [None]
  - VISION BLURRED [None]
